FAERS Safety Report 20833854 (Version 2)
Quarter: 2022Q2

REPORT INFORMATION
  Report Type: Spontaneous
  Country: CH (occurrence: CH)
  Receive Date: 20220516
  Receipt Date: 20220526
  Transmission Date: 20220721
  Serious: Yes (Other)
  Sender: FDA-Public Use
  Company Number: CH-PFIZER INC-202200660135

PATIENT
  Age: 64 Year
  Sex: Male
  Weight: 62 kg

DRUGS (5)
  1. BOSULIF [Suspect]
     Active Substance: BOSUTINIB MONOHYDRATE
     Indication: Chronic myeloid leukaemia
     Dosage: 500 MG, DAILY
     Route: 048
     Dates: start: 20211218, end: 20220118
  2. DASATINIB [Suspect]
     Active Substance: DASATINIB
     Indication: Chronic myeloid leukaemia
     Dosage: 100 MG
  3. TRESIBA [Concomitant]
     Active Substance: INSULIN DEGLUDEC
     Indication: Diabetes mellitus
  4. FIASP [Concomitant]
     Active Substance: INSULIN ASPART
     Indication: Diabetes mellitus
  5. METFORMIN [Concomitant]
     Active Substance: METFORMIN HYDROCHLORIDE
     Indication: Diabetes mellitus

REACTIONS (4)
  - Abdominal pain [Recovered/Resolved]
  - Liver function test abnormal [Unknown]
  - Amylase abnormal [Unknown]
  - Headache [Unknown]
